FAERS Safety Report 9505145 (Version 3)
Quarter: 2014Q1

REPORT INFORMATION
  Report Type: Spontaneous
  Country: US (occurrence: US)
  Receive Date: 20130906
  Receipt Date: 20140227
  Transmission Date: 20141002
  Serious: Yes (Death, Hospitalization)
  Sender: FDA-Public Use
  Company Number: US-B.I. PHARMACEUTICALS,INC./RIDGEFIELD-2013-BI-27603BP

PATIENT
  Age: 80 Year
  Sex: Female
  Weight: 95.25 kg

DRUGS (10)
  1. PRADAXA [Suspect]
     Indication: ATRIAL FIBRILLATION
     Dosage: 300 MG
     Route: 048
     Dates: start: 20110303, end: 20110910
  2. SYNTHROID [Concomitant]
     Dosage: 0.125 MG
     Route: 065
     Dates: start: 200902, end: 201109
  3. SLOW-K [Concomitant]
     Dosage: 30 MEQ
     Route: 065
     Dates: start: 200905, end: 201109
  4. DIOVAN [Concomitant]
     Dosage: 320 MG
     Route: 065
     Dates: start: 201104, end: 201109
  5. CATAPRES [Concomitant]
     Dosage: 0.1 MG
     Route: 065
     Dates: start: 200902, end: 201109
  6. ISOSORBIDE MONONITRATE [Concomitant]
     Route: 065
     Dates: start: 200908, end: 201109
  7. LASIX [Concomitant]
     Dosage: 40 MG
     Route: 065
     Dates: start: 201005, end: 201109
  8. HYDRALAZINE HCL [Concomitant]
     Route: 065
     Dates: start: 201005, end: 201109
  9. TRAZODONE HCL [Concomitant]
     Route: 065
     Dates: start: 201001, end: 201109
  10. CRESTOR [Concomitant]
     Dosage: 10 MG
     Route: 065

REACTIONS (5)
  - Gastrointestinal haemorrhage [Fatal]
  - Aortic dissection [Fatal]
  - Chest pain [Recovered/Resolved]
  - Contusion [Unknown]
  - Haematoma [Unknown]
